FAERS Safety Report 5175336-X (Version None)
Quarter: 2006Q4

REPORT INFORMATION
  Report Type: 
  Country: None (occurrence: None)
  Receive Date: 20061215
  Receipt Date: 20061124
  Transmission Date: 20070319
  Serious: Yes (Other)
  Sender: FDA-Public Use
  Company Number: PHMT2006CA02207

PATIENT
  Age: 75 Year
  Sex: Male

DRUGS (2)
  1. DESFERAL [Suspect]
     Indication: IRON OVERLOAD
     Dosage: 200 MG ONCE WEEKLY
     Route: 042
     Dates: start: 20051201
  2. DESFERAL [Suspect]
     Dosage: 300 MG TWICE WEEKLY

REACTIONS (1)
  - MYOCARDIAL INFARCTION [None]
